FAERS Safety Report 22661726 (Version 1)
Quarter: 2023Q2

REPORT INFORMATION
  Report Type: Spontaneous
  Country: US (occurrence: US)
  Receive Date: 20230630
  Receipt Date: 20230630
  Transmission Date: 20230721
  Serious: No
  Sender: FDA-Public Use
  Company Number: US-BRISTOL-MYERS SQUIBB COMPANY-2023-092129

PATIENT
  Age: 63 Year
  Sex: Female
  Weight: 95.25 kg

DRUGS (1)
  1. POMALYST [Suspect]
     Active Substance: POMALIDOMIDE
     Indication: Plasma cell myeloma
     Dosage: FREQ - 21D Q28DAYS
     Route: 048

REACTIONS (10)
  - Dizziness [Unknown]
  - Balance disorder [Unknown]
  - Nausea [Unknown]
  - Constipation [Unknown]
  - Vision blurred [Unknown]
  - Rash pruritic [Unknown]
  - Fatigue [Unknown]
  - Toothache [Unknown]
  - Erythema [Unknown]
  - Eye disorder [Unknown]
